FAERS Safety Report 8554430-7 (Version None)
Quarter: 2012Q3

REPORT INFORMATION
  Report Type: 
  Country: None (occurrence: None)
  Receive Date: 20120731
  Receipt Date: 20120727
  Transmission Date: 20120928
  Serious: No
  Sender: FDA-Public Use
  Company Number: US-009507513-1207USA011565

PATIENT

DRUGS (1)
  1. INTEGRILIN [Suspect]
     Indication: CHEST PAIN
     Dosage: 1 DF, UNK
     Route: 042
     Dates: start: 20120624, end: 20120624

REACTIONS (3)
  - HYPERSENSITIVITY [None]
  - EXOPHTHALMOS [None]
  - RASH MACULAR [None]
